FAERS Safety Report 18972364 (Version 1)
Quarter: 2021Q1

REPORT INFORMATION
  Report Type: Spontaneous
  Country: CH (occurrence: CH)
  Receive Date: 20210305
  Receipt Date: 20210305
  Transmission Date: 20210420
  Serious: Yes (Other)
  Sender: FDA-Public Use
  Company Number: CH-TEVA-2021-CH-1885411

PATIENT
  Age: 3 Decade
  Sex: Female

DRUGS (7)
  1. L?ASPARAGINASE [Concomitant]
     Active Substance: ASPARAGINASE
     Indication: T-CELL TYPE ACUTE LEUKAEMIA
     Route: 065
  2. CYCLOPHOSPHAMIDE. [Concomitant]
     Active Substance: CYCLOPHOSPHAMIDE
     Indication: T-CELL TYPE ACUTE LEUKAEMIA
     Route: 065
  3. CYTARABINE. [Concomitant]
     Active Substance: CYTARABINE
     Indication: T-CELL TYPE ACUTE LEUKAEMIA
     Route: 065
  4. DAUNORUBICIN [Concomitant]
     Active Substance: DAUNORUBICIN
     Indication: T-CELL TYPE ACUTE LEUKAEMIA
     Route: 065
  5. METHOTREXATE. [Concomitant]
     Active Substance: METHOTREXATE
     Indication: T-CELL TYPE ACUTE LEUKAEMIA
     Route: 065
  6. VINCRISTINE [Suspect]
     Active Substance: VINCRISTINE
     Indication: T-CELL TYPE ACUTE LEUKAEMIA
     Route: 065
  7. ETOPOSIDE. [Concomitant]
     Active Substance: ETOPOSIDE
     Indication: T-CELL TYPE ACUTE LEUKAEMIA
     Route: 065

REACTIONS (3)
  - Neuropathy peripheral [Unknown]
  - Gait disturbance [Unknown]
  - Peroneal nerve palsy [Unknown]
